FAERS Safety Report 17220884 (Version 1)
Quarter: 2019Q4

REPORT INFORMATION
  Report Type: Spontaneous
  Country: US (occurrence: US)
  Receive Date: 20191231
  Receipt Date: 20191231
  Transmission Date: 20200122
  Serious: No
  Sender: FDA-Public Use
  Company Number: US-FOUNDATIONCONSUMERHC-2019-US-015456

PATIENT
  Age: 17 Year
  Sex: Female
  Weight: 55.34 kg

DRUGS (2)
  1. EROSTIRENA ETHINYL ESTRADIOL [Concomitant]
  2. AFTERA [Suspect]
     Active Substance: LEVONORGESTREL
     Indication: POST COITAL CONTRACEPTION
     Route: 048
     Dates: start: 20190731, end: 20190731

REACTIONS (4)
  - Abdominal pain upper [Not Recovered/Not Resolved]
  - Constipation [Recovered/Resolved]
  - Diarrhoea [Recovered/Resolved]
  - Nausea [Not Recovered/Not Resolved]

NARRATIVE: CASE EVENT DATE: 20190805
